FAERS Safety Report 4422858-2 (Version None)
Quarter: 2004Q3

REPORT INFORMATION
  Report Type: 
  Country: None (occurrence: None)
  Receive Date: 20040804
  Receipt Date: 20040722
  Transmission Date: 20050211
  Serious: Yes (Hospitalization, Other)
  Sender: FDA-Public Use
  Company Number: S04-USA-04485-01

PATIENT
  Age: 15 Year
  Sex: Male
  Weight: 96.6162 kg

DRUGS (4)
  1. LEXAPRO [Suspect]
     Indication: DEPRESSION
     Dosage: 10 MG QD PO
     Route: 048
     Dates: start: 20040414, end: 20040420
  2. LEXAPRO [Suspect]
     Indication: DEPRESSION
     Dosage: 15 MG QD PO
     Route: 048
     Dates: start: 20040421, end: 20040401
  3. CONCERTA [Suspect]
     Indication: ATTENTION DEFICIT/HYPERACTIVITY DISORDER
     Dosage: 135 MG QD
     Dates: start: 20040414, end: 20040401
  4. ALCOHOL (ALCOHOL) [Suspect]

REACTIONS (12)
  - ABNORMAL BEHAVIOUR [None]
  - ALCOHOLISM [None]
  - APATHY [None]
  - BELLIGERENCE [None]
  - DEPRESSION [None]
  - DISINHIBITION [None]
  - LEGAL PROBLEM [None]
  - PERSONALITY CHANGE [None]
  - PHYSICAL ASSAULT [None]
  - SCHOOL REFUSAL [None]
  - THINKING ABNORMAL [None]
  - WEIGHT INCREASED [None]
